FAERS Safety Report 11977469 (Version 1)
Quarter: 2016Q1

REPORT INFORMATION
  Report Type: Spontaneous
  Country: US (occurrence: None)
  Receive Date: 20160128
  Receipt Date: 20160128
  Transmission Date: 20160526
  Serious: No
  Sender: FDA-Public Use
  Company Number: None

PATIENT
  Age: 56 Year
  Weight: 95.26 kg

DRUGS (3)
  1. OXYCODONE/ACETAMINOPHEN 10/325TB ACTAVIS [Suspect]
     Active Substance: ACETAMINOPHEN\OXYCODONE HYDROCHLORIDE
     Indication: ROTATOR CUFF REPAIR
     Dosage: 1EVERY 4 TO 6 HOURS TAKEN BY MOUTH
     Route: 048
     Dates: start: 20150105, end: 20150127
  2. OXYCODONE/ACETAMINOPHEN 10/325TB ACTAVIS [Suspect]
     Active Substance: ACETAMINOPHEN\OXYCODONE HYDROCHLORIDE
     Indication: SPINAL OPERATION
     Dosage: 1EVERY 4 TO 6 HOURS TAKEN BY MOUTH
     Route: 048
     Dates: start: 20150105, end: 20150127
  3. OXYCODONE/ACETAMINOPHEN 10/325TB ACTAVIS [Suspect]
     Active Substance: ACETAMINOPHEN\OXYCODONE HYDROCHLORIDE
     Indication: SPINAL COLUMN STENOSIS
     Dosage: 1EVERY 4 TO 6 HOURS TAKEN BY MOUTH
     Route: 048
     Dates: start: 20150105, end: 20150127

REACTIONS (3)
  - Nausea [None]
  - Headache [None]
  - Drug effect decreased [None]

NARRATIVE: CASE EVENT DATE: 20150127
